FAERS Safety Report 13718481 (Version 1)
Quarter: 2017Q3

REPORT INFORMATION
  Report Type: Spontaneous
  Country: DE (occurrence: DE)
  Receive Date: 20170705
  Receipt Date: 20170705
  Transmission Date: 20171127
  Serious: Yes (Death, Hospitalization)
  Sender: FDA-Public Use
  Company Number: DE-LPDUSPRD-20170113

PATIENT
  Age: 63 Year
  Sex: Male

DRUGS (1)
  1. FERINJECT [Suspect]
     Active Substance: FERRIC CARBOXYMALTOSE
     Dosage: 1000MG, GIVEN FOR 21DAYS
     Route: 041

REACTIONS (6)
  - Overdose [Unknown]
  - Apathy [Not Recovered/Not Resolved]
  - Intestinal perforation [Fatal]
  - Inappropriate schedule of drug administration [Unknown]
  - Lethargy [Not Recovered/Not Resolved]
  - Malaise [Not Recovered/Not Resolved]
